FAERS Safety Report 6571422-8 (Version None)
Quarter: 2010Q1

REPORT INFORMATION
  Report Type: 
  Country: None (occurrence: None)
  Receive Date: 20100205
  Receipt Date: 20100126
  Transmission Date: 20100710
  Serious: Yes (Disabling)
  Sender: FDA-Public Use
  Company Number: US-PFIZER INC-2005032916

PATIENT
  Sex: Female
  Weight: 82 kg

DRUGS (19)
  1. BEXTRA [Suspect]
     Indication: PAIN
     Dosage: 20 MG, 2X/DAY
     Route: 048
     Dates: start: 20030101
  2. BEXTRA [Suspect]
     Indication: MULTIPLE SCLEROSIS
  3. CELEBREX [Suspect]
     Indication: PAIN
     Dosage: 200 MG, 1X/DAY
  4. CELEBREX [Suspect]
     Indication: MULTIPLE SCLEROSIS
  5. PANTOPRAZOLE [Concomitant]
     Route: 048
  6. TAMSULOSIN HCL [Concomitant]
     Route: 048
  7. GLICLAZIDE [Concomitant]
     Route: 048
  8. ESTROGENS CONJUGATED [Concomitant]
     Route: 048
     Dates: start: 19800101
  9. MONTELUKAST SODIUM [Concomitant]
     Route: 048
  10. TIZANIDINE HYDROCHLORIDE [Concomitant]
     Route: 048
  11. BUPROPION HCL [Concomitant]
     Route: 048
  12. CITALOPRAM HYDROBROMIDE [Concomitant]
     Route: 048
  13. CLONAZEPAM [Concomitant]
     Route: 048
  14. CONGESTEZE [Concomitant]
     Route: 065
  15. SALMETEROL XINAFOATE [Concomitant]
     Route: 065
  16. SALBUTAMOL SULFATE [Concomitant]
     Route: 065
  17. TOPIRAMATE [Concomitant]
     Route: 065
  18. TOCOPHEROL CONCENTRATE CAP [Concomitant]
     Route: 065
  19. MULTI-VITAMINS [Concomitant]
     Route: 065

REACTIONS (3)
  - DRUG INEFFECTIVE [None]
  - MULTIPLE SCLEROSIS [None]
  - RASH PRURITIC [None]
